FAERS Safety Report 11967310 (Version 1)
Quarter: 2016Q1

REPORT INFORMATION
  Report Type: Spontaneous
  Country: US (occurrence: US)
  Receive Date: 20160127
  Receipt Date: 20160127
  Transmission Date: 20160526
  Serious: No
  Sender: FDA-Public Use
  Company Number: US-GILEAD-2016-0194675

PATIENT
  Sex: Male

DRUGS (2)
  1. HEPATITIS A VACCINE W/HEPATITIS B VACCINE [Concomitant]
  2. TRUVADA [Suspect]
     Active Substance: EMTRICITABINE\TENOFOVIR DISOPROXIL FUMARATE
     Indication: PRODUCT USED FOR UNKNOWN INDICATION
     Dosage: UNK
     Route: 065
     Dates: start: 201512

REACTIONS (2)
  - Urticaria [Unknown]
  - Acne [Unknown]

NARRATIVE: CASE EVENT DATE: 201601
